FAERS Safety Report 8354598-1 (Version None)
Quarter: 2012Q2

REPORT INFORMATION
  Report Type: 
  Country: None (occurrence: None)
  Receive Date: 20120511
  Receipt Date: 20120507
  Transmission Date: 20120825
  Serious: Yes (Disabling)
  Sender: FDA-Public Use
  Company Number: US-MERCK-1109USA02512

PATIENT
  Age: 53 Year
  Sex: Male

DRUGS (3)
  1. PROPECIA [Suspect]
     Indication: ALOPECIA
     Route: 048
     Dates: start: 20070101, end: 20101101
  2. PROPECIA [Suspect]
     Route: 048
     Dates: start: 20070101, end: 20101101
  3. PROSCAR [Suspect]
     Indication: ALOPECIA
     Route: 048
     Dates: start: 20100101, end: 20101101

REACTIONS (14)
  - VERTIGO POSITIONAL [None]
  - POOR DENTAL CONDITION [None]
  - DEPRESSION [None]
  - DYSPHAGIA [None]
  - ERECTILE DYSFUNCTION [None]
  - EMOTIONAL DISTRESS [None]
  - ANDROGEN DEFICIENCY [None]
  - PROSTATOMEGALY [None]
  - ANXIETY [None]
  - INGUINAL HERNIA [None]
  - MALE GENITAL EXAMINATION ABNORMAL [None]
  - DRY MOUTH [None]
  - RHINITIS [None]
  - ANORGASMIA [None]
